FAERS Safety Report 4686684-1 (Version None)
Quarter: 2005Q2

REPORT INFORMATION
  Report Type: 
  Country: None (occurrence: None)
  Receive Date: 20050606
  Receipt Date: 20050525
  Transmission Date: 20051028
  Serious: Yes (Hospitalization)
  Sender: FDA-Public Use
  Company Number: EWC050543894

PATIENT
  Age: 62 Year
  Sex: Female

DRUGS (4)
  1. FORTEO [Suspect]
     Indication: OSTEOPOROSIS
     Dates: start: 20040101, end: 20050428
  2. LIVOSTIN [Concomitant]
  3. ACC (ACETYLCYSTEINE M/G) [Concomitant]
  4. CELESTAMINE TAB [Concomitant]

REACTIONS (3)
  - ABDOMINAL PAIN [None]
  - HIP ARTHROPLASTY [None]
  - PALPITATIONS [None]
